FAERS Safety Report 5411218-3 (Version None)
Quarter: 2007Q3

REPORT INFORMATION
  Report Type: 
  Country: None (occurrence: None)
  Receive Date: 20070810
  Receipt Date: 20070807
  Transmission Date: 20080115
  Serious: Yes (Hospitalization)
  Sender: FDA-Public Use
  Company Number: B0480873A

PATIENT
  Age: 71 Year
  Sex: Female
  Weight: 57 kg

DRUGS (9)
  1. VALTREX [Suspect]
     Indication: HERPES ZOSTER
     Dosage: 1000MG THREE TIMES PER DAY
     Route: 048
     Dates: start: 20070719, end: 20070723
  2. OLMETEC [Concomitant]
     Indication: HYPERTENSION
     Route: 048
     Dates: end: 20070724
  3. ASPIRIN [Concomitant]
     Indication: ANGINA PECTORIS
     Dosage: 100MG PER DAY
     Route: 048
  4. METOPROLOL TARTRATE [Concomitant]
     Indication: HYPERTENSION
     Dosage: 40MG PER DAY
     Route: 048
  5. LIPITOR [Concomitant]
     Indication: LIPIDS ABNORMAL
     Dosage: 20MG PER DAY
     Route: 048
  6. MAGNESIUM HYDROXIDE TAB [Concomitant]
     Indication: CONSTIPATION
     Dosage: 1050MG PER DAY
     Route: 048
  7. SELBEX [Concomitant]
     Indication: GASTRITIS HERPES
     Dosage: 150MG PER DAY
     Route: 048
     Dates: end: 20070724
  8. ARASENA-A [Concomitant]
     Indication: HERPES ZOSTER
     Route: 061
     Dates: start: 20070719
  9. DEPAS [Concomitant]
     Indication: INSOMNIA
     Route: 048
     Dates: end: 20070723

REACTIONS (10)
  - ABASIA [None]
  - ANOREXIA [None]
  - DELIRIUM [None]
  - DIZZINESS [None]
  - DYSARTHRIA [None]
  - EATING DISORDER [None]
  - NERVOUS SYSTEM DISORDER [None]
  - RENAL FAILURE ACUTE [None]
  - SOMNOLENCE [None]
  - VOMITING [None]
